FAERS Safety Report 14935905 (Version 2)
Quarter: 2018Q2

REPORT INFORMATION
  Report Type: Spontaneous
  Country: US (occurrence: US)
  Receive Date: 20180524
  Receipt Date: 20180619
  Transmission Date: 20180711
  Serious: No
  Sender: FDA-Public Use
  Company Number: US-GILEAD-2018-0339910

PATIENT
  Age: 85 Year
  Sex: Male

DRUGS (3)
  1. DILANTIN [Interacting]
     Active Substance: PHENYTOIN
     Dosage: IN PM200 MG, QD
     Route: 065
  2. DILANTIN [Interacting]
     Active Substance: PHENYTOIN
     Indication: SEIZURE
     Dosage: 150 MG, QD IN AM
     Route: 048
  3. RANEXA [Suspect]
     Active Substance: RANOLAZINE
     Indication: CARDIAC DISORDER
     Dosage: UNK
     Route: 065
     Dates: start: 2016

REACTIONS (4)
  - Balance disorder [Not Recovered/Not Resolved]
  - Drug interaction [Not Recovered/Not Resolved]
  - Labelled drug-drug interaction medication error [Not Recovered/Not Resolved]
  - General physical health deterioration [Not Recovered/Not Resolved]
